FAERS Safety Report 9912479 (Version 3)
Quarter: 2014Q1

REPORT INFORMATION
  Report Type: Report from Study
  Country: IT (occurrence: IT)
  Receive Date: 20140220
  Receipt Date: 20140318
  Transmission Date: 20141002
  Serious: Yes (Other)
  Sender: FDA-Public Use
  Company Number: IT-SHIRE-CQT2-2013-00005

PATIENT
  Sex: 0

DRUGS (14)
  1. 422 (ANAGRELIDE) [Suspect]
     Indication: ESSENTIAL THROMBOCYTHAEMIA
     Dosage: 0.500 MG, 2X/DAY:BID
     Route: 048
     Dates: start: 20081013, end: 20090209
  2. 422 (ANAGRELIDE) [Suspect]
     Dosage: 0.500 MG, 3X/DAY:TID
     Route: 048
     Dates: start: 20090210, end: 20100111
  3. 422 (ANAGRELIDE) [Suspect]
     Dosage: 0.500 MG, 4X/DAY:QID
     Route: 048
     Dates: start: 20100112, end: 20110622
  4. 422 (ANAGRELIDE) [Suspect]
     Dosage: 0.500 MG, OTHER
     Route: 048
     Dates: start: 20110623, end: 20121112
  5. HYDROXYUREA [Suspect]
     Indication: ESSENTIAL THROMBOCYTHAEMIA
     Dosage: 1000 MG, 1X/DAY:QD
     Route: 048
     Dates: start: 20080922, end: 20090726
  6. HYDROXYUREA [Suspect]
     Dosage: 500 MG, 1X/DAY:QD
     Route: 048
     Dates: start: 20090727, end: 20100620
  7. HYDROXYUREA [Suspect]
     Dosage: 500 MG, QOD
     Route: 048
     Dates: start: 20100621, end: 20110109
  8. HYDROXYUREA [Suspect]
     Dosage: 500 MG, 1X/DAY:QD
     Route: 048
     Dates: start: 20121212, end: 20130324
  9. HYDROXYUREA [Suspect]
     Dosage: 500 MG, 2X/DAY:BID
     Route: 048
     Dates: start: 20130325, end: 20130716
  10. HYDROXYUREA [Suspect]
     Dosage: 500 MG, 3X/DAY:TID
     Route: 048
     Dates: start: 20130717, end: 20131209
  11. HYDROXYUREA [Suspect]
     Dosage: 500 MG, 2X/DAY:BID
     Route: 048
     Dates: start: 20131210
  12. ACETYLSALICYLIC ACID [Suspect]
     Indication: ESSENTIAL THROMBOCYTHAEMIA
     Dosage: 100 MG, 1X/DAY:QD
     Route: 048
     Dates: start: 20051101, end: 20080922
  13. ACETYLSALICYLIC ACID [Suspect]
     Dosage: 100 MG, 1X/DAY:QD
     Route: 048
     Dates: start: 20080923, end: 20090726
  14. ACETYLSALICYLIC ACID [Suspect]
     Dosage: 100 MG, 1X/DAY:QD
     Route: 048
     Dates: start: 20090727

REACTIONS (1)
  - Myelofibrosis [Not Recovered/Not Resolved]
